APPROVED DRUG PRODUCT: AUGMENTIN '125'
Active Ingredient: AMOXICILLIN; CLAVULANATE POTASSIUM
Strength: 125MG/5ML;EQ 31.25MG BASE/5ML
Dosage Form/Route: FOR SUSPENSION;ORAL
Application: N050575 | Product #001 | TE Code: AB
Applicant: US ANTIBIOTICS LLC
Approved: Aug 6, 1984 | RLD: Yes | RS: No | Type: RX